FAERS Safety Report 4529318-9 (Version None)
Quarter: 2004Q4

REPORT INFORMATION
  Report Type: 
  Country: None (occurrence: None)
  Receive Date: 20041214
  Receipt Date: 20041201
  Transmission Date: 20050328
  Serious: Yes (Hospitalization)
  Sender: FDA-Public Use
  Company Number: 2003185978IE

PATIENT
  Age: 73 Year
  Sex: Male

DRUGS (10)
  1. ZYVOX [Suspect]
     Indication: SKIN ULCER
     Dosage: 1200 MG (1200 MG, DAILY), ORAL
     Route: 048
     Dates: start: 20031003, end: 20031023
  2. LOGIRENE (FUROSEMIDE, AMILORIDE HYDROCHLORIDE) [Suspect]
     Indication: ESSENTIAL HYPERTENSION
     Dosage: 1 DF, ORAL
     Route: 048
     Dates: start: 20031003, end: 20031022
  3. CAPTOPRIL DOROM (CAPTOPRIL) [Suspect]
     Indication: ESSENTIAL HYPERTENSION
     Dosage: 1 DF, ORAL
     Route: 048
     Dates: start: 20031003, end: 20031022
  4. DRENOL (HYDROCHLOROTHIAZIDE) [Suspect]
     Indication: ESSENTIAL HYPERTENSION
     Dosage: 1 DF, ORAL
     Route: 048
     Dates: start: 20031003, end: 20031022
  5. CIPROFLOXACIN [Concomitant]
  6. DOXAZOSIN MESYLATE [Concomitant]
  7. TYLEX (CARBINOXAMINE MALEATE, PARACETAMOL, PHENYLEPHRINE HYDROCHLORIDE [Concomitant]
  8. METRONIDAZOLE [Concomitant]
  9. ACYCLOVIR [Concomitant]
  10. GENTAMICIN [Concomitant]

REACTIONS (2)
  - BLOOD UREA INCREASED [None]
  - RENAL IMPAIRMENT [None]
